FAERS Safety Report 22534742 (Version 1)
Quarter: 2023Q2

REPORT INFORMATION
  Report Type: Spontaneous
  Country: US (occurrence: US)
  Receive Date: 20230608
  Receipt Date: 20230608
  Transmission Date: 20230721
  Serious: Yes (Other)
  Sender: FDA-Public Use
  Company Number: US-drreddys-SPO/USA/23/0166366

PATIENT
  Age: 63 Year
  Sex: Male

DRUGS (1)
  1. ESTRADIOL [Suspect]
     Active Substance: ESTRADIOL
     Indication: Transgender hormonal therapy

REACTIONS (3)
  - Hepatic cirrhosis [Recovered/Resolved]
  - Portal hypertension [Unknown]
  - Product use issue [Recovered/Resolved]
